FAERS Safety Report 8207056-9 (Version None)
Quarter: 2012Q1

REPORT INFORMATION
  Report Type: 
  Country: None (occurrence: None)
  Receive Date: 20120314
  Receipt Date: 20120306
  Transmission Date: 20120608
  Serious: Yes (Other)
  Sender: FDA-Public Use
  Company Number: US-BAYER-2011-112993

PATIENT
  Age: 29 Year
  Sex: Female
  Weight: 86.168 kg

DRUGS (7)
  1. DROSPIRENONE AND ETHINYL ESTRADIOL [Suspect]
     Dosage: UNK
     Dates: start: 20090901
  2. PAXIL [Concomitant]
  3. LORATADINE [Concomitant]
     Indication: RHINITIS ALLERGIC
     Dosage: UNK UNK, PRN
     Dates: start: 20091105
  4. YASMIN [Suspect]
     Dosage: UNK
  5. YAZ [Suspect]
     Dosage: UNK
     Dates: start: 20090901
  6. METFORMIN HCL [Concomitant]
     Indication: POLYCYSTIC OVARIES
     Dosage: 850 MG, BID
  7. FLUTICASONE PROPIONATE [Concomitant]
     Indication: RHINITIS ALLERGIC
     Dosage: UNK UNK, PRN
     Dates: start: 20091105

REACTIONS (6)
  - INJURY [None]
  - ANXIETY [None]
  - DEEP VEIN THROMBOSIS [None]
  - PAIN [None]
  - EMOTIONAL DISTRESS [None]
  - GENERAL PHYSICAL HEALTH DETERIORATION [None]
